FAERS Safety Report 6504855-6 (Version None)
Quarter: 2009Q4

REPORT INFORMATION
  Report Type: 
  Country: None (occurrence: None)
  Receive Date: 20091218
  Receipt Date: 20091209
  Transmission Date: 20100525
  Serious: Yes (Hospitalization)
  Sender: FDA-Public Use
  Company Number: JP-JNJFOC-20091105253

PATIENT
  Sex: Male
  Weight: 53 kg

DRUGS (4)
  1. REMICADE [Suspect]
     Route: 042
     Dates: start: 20090821, end: 20091002
  2. REMICADE [Suspect]
     Route: 042
     Dates: start: 20090821, end: 20091002
  3. REMICADE [Suspect]
     Indication: CROHN'S DISEASE
     Dosage: 1 INFUSION ON AN UNSPECIFIED DATE
     Route: 042
     Dates: start: 20090821, end: 20091002
  4. LEUKERIN [Suspect]
     Indication: CROHN'S DISEASE
     Route: 048

REACTIONS (2)
  - DISSEMINATED TUBERCULOSIS [None]
  - HEPATIC FUNCTION ABNORMAL [None]
